FAERS Safety Report 6783784-7 (Version None)
Quarter: 2010Q2

REPORT INFORMATION
  Report Type: 
  Country: None (occurrence: None)
  Receive Date: 20100622
  Receipt Date: 20100608
  Transmission Date: 20101027
  Serious: Yes (Other)
  Sender: FDA-Public Use
  Company Number: US-BAYER-201024966NA

PATIENT
  Age: 71 Year
  Sex: Female
  Weight: 64 kg

DRUGS (3)
  1. ULTRAVIST 150 [Suspect]
     Indication: COMPUTERISED TOMOGRAM ABDOMEN
     Dosage: TOTAL DAILY DOSE: 95 ML  UNIT DOSE: 200 ML
     Route: 042
     Dates: start: 20100607, end: 20100607
  2. CRESTOR [Concomitant]
  3. VOLUMEN [Concomitant]
     Route: 048
     Dates: start: 20100607, end: 20100607

REACTIONS (7)
  - COUGH [None]
  - HYPOAESTHESIA ORAL [None]
  - NASAL CONGESTION [None]
  - PERIORBITAL OEDEMA [None]
  - RASH [None]
  - RESPIRATORY TRACT CONGESTION [None]
  - URTICARIA [None]
